FAERS Safety Report 18486582 (Version 1)
Quarter: 2020Q4

REPORT INFORMATION
  Report Type: Spontaneous
  Country: US (occurrence: US)
  Receive Date: 20201110
  Receipt Date: 20201110
  Transmission Date: 20210114
  Serious: No
  Sender: FDA-Public Use
  Company Number: US-PFIZER INC-2020443093

PATIENT
  Age: 65 Year
  Sex: Female
  Weight: 99.79 kg

DRUGS (2)
  1. ZOLOFT [Suspect]
     Active Substance: SERTRALINE HYDROCHLORIDE
     Indication: ANXIETY
  2. ZOLOFT [Suspect]
     Active Substance: SERTRALINE HYDROCHLORIDE
     Indication: STRESS
     Dosage: 100 MG, 1X/DAY
     Route: 048

REACTIONS (4)
  - Poor quality product administered [Unknown]
  - Suspected product contamination [Unknown]
  - Tongue disorder [Unknown]
  - Paraesthesia oral [Unknown]
